FAERS Safety Report 5755341-2 (Version None)
Quarter: 2008Q2

REPORT INFORMATION
  Report Type: 
  Country: None (occurrence: None)
  Receive Date: 20080602
  Receipt Date: 20080528
  Transmission Date: 20081010
  Serious: Yes (Hospitalization)
  Sender: FDA-Public Use
  Company Number: CA-BRISTOL-MYERS SQUIBB COMPANY-13968102

PATIENT
  Age: 49 Year
  Sex: Female

DRUGS (9)
  1. ORENCIA [Suspect]
     Indication: RHEUMATOID ARTHRITIS
     Dosage: 1ST INFUSIONS GIVEN ON 03-OCT-2007, 2ND ON 19-OCT-2007, DURATION=Q2
     Route: 042
     Dates: start: 20071003, end: 20071019
  2. PREDNISONE TAB [Concomitant]
  3. CELEBREX [Concomitant]
  4. ACTONEL [Concomitant]
  5. ARAVA [Concomitant]
  6. LOSEC I.V. [Concomitant]
  7. CALCIUM + VITAMIN D [Concomitant]
  8. MORPHINE [Concomitant]
     Dosage: 1-3 TABS PRN
  9. ATENOLOL [Concomitant]

REACTIONS (2)
  - NECROTISING FASCIITIS [None]
  - NECROTISING FASCIITIS STREPTOCOCCAL [None]
